FAERS Safety Report 19156743 (Version 2)
Quarter: 2023Q4

REPORT INFORMATION
  Report Type: Spontaneous
  Country: FR (occurrence: FR)
  Receive Date: 20210420
  Receipt Date: 20231221
  Transmission Date: 20240110
  Serious: Yes (Death, Other)
  Sender: FDA-Public Use
  Company Number: FR-AFSSAPS-TS20211192

PATIENT
  Age: 83 Year
  Sex: Female

DRUGS (11)
  1. ATORVASTATIN [Suspect]
     Active Substance: ATORVASTATIN
     Indication: Dyslipidaemia
     Dosage: 10 MILLIGRAM, ONCE A DAY
     Route: 048
  2. ONDANSETRON [Suspect]
     Active Substance: ONDANSETRON
     Indication: Chemotherapy side effect prophylaxis
     Dosage: 8 MILLIGRAM, CYCLICAL
     Route: 042
     Dates: start: 20210305, end: 20210305
  3. OXALIPLATIN [Suspect]
     Active Substance: OXALIPLATIN
     Indication: Adenocarcinoma of colon
     Dosage: 120 MILLIGRAM, CYCLICAL
     Route: 042
     Dates: start: 20210305, end: 20210305
  4. ZOPICLONE [Suspect]
     Active Substance: ZOPICLONE
     Indication: Sleep disorder
     Dosage: UNK
     Route: 048
  5. CORDARONE [Suspect]
     Active Substance: AMIODARONE HYDROCHLORIDE
     Indication: Atrial fibrillation
     Dosage: 200 MILLIGRAM, ONCE A DAY
     Route: 048
     Dates: end: 20210305
  6. EXFORGE [Suspect]
     Active Substance: AMLODIPINE BESYLATE\VALSARTAN
     Indication: Hypertension
     Dosage: 1 DOSAGE FORM, ONCE A DAY
     Route: 048
  7. FLUOROURACIL [Suspect]
     Active Substance: FLUOROURACIL
     Indication: Adenocarcinoma of colon
     Dosage: 2 GRAM, CYCLICAL
     Route: 042
     Dates: start: 20210305, end: 20210305
  8. LEUCOVORIN CALCIUM [Suspect]
     Active Substance: LEUCOVORIN CALCIUM
     Indication: Adenocarcinoma of colon
     Dosage: 670 MILLIGRAM, CYCLICAL
     Route: 042
     Dates: start: 20210305, end: 20210305
  9. METHYLPREDNISOLONE [Suspect]
     Active Substance: METHYLPREDNISOLONE
     Indication: Chemotherapy side effect prophylaxis
     Dosage: 80 MILLIGRAM, CYCLICAL
     Route: 042
     Dates: start: 20210305, end: 20210305
  10. PRADAXA [Suspect]
     Active Substance: DABIGATRAN ETEXILATE MESYLATE
     Indication: Atrial fibrillation
     Dosage: 220 MILLIGRAM, ONCE A DAY
     Route: 048
  11. ONDANSETRON [Suspect]
     Active Substance: ONDANSETRON
     Indication: Chemotherapy side effect prophylaxis
     Dosage: 8 MILLIGRAM, CYCLICAL
     Route: 042
     Dates: start: 20210305, end: 20210305

REACTIONS (1)
  - Interstitial lung disease [Fatal]

NARRATIVE: CASE EVENT DATE: 20210305
